FAERS Safety Report 18035379 (Version 1)
Quarter: 2020Q3

REPORT INFORMATION
  Report Type: Spontaneous
  Country: US (occurrence: US)
  Receive Date: 20200716
  Receipt Date: 20200716
  Transmission Date: 20201103
  Serious: Yes (Hospitalization)
  Sender: FDA-Public Use
  Company Number: None

PATIENT
  Age: 60 Year
  Sex: Male
  Weight: 94.8 kg

DRUGS (2)
  1. RIFAMPIN. [Suspect]
     Active Substance: RIFAMPIN
     Route: 048
     Dates: start: 20190423, end: 20190507
  2. DAPTOMYCIN (DAPTOMYCIN 500MG/VIL INJ) [Suspect]
     Active Substance: DAPTOMYCIN
     Indication: SURGERY
     Route: 042
     Dates: start: 20190423, end: 20190506

REACTIONS (5)
  - Hepatic enzyme increased [None]
  - Acute kidney injury [None]
  - Rhabdomyolysis [None]
  - Hyperkalaemia [None]
  - Dialysis [None]

NARRATIVE: CASE EVENT DATE: 20190506
